FAERS Safety Report 26141885 (Version 2)
Quarter: 2025Q4

REPORT INFORMATION
  Report Type: Spontaneous
  Country: EU (occurrence: EU)
  Receive Date: 20251210
  Receipt Date: 20251224
  Transmission Date: 20260117
  Serious: Yes (Hospitalization, Disabling)
  Sender: ELI LILLY AND COMPANY
  Company Number: EU-ELI_LILLY_AND_COMPANY-FI202512004122

PATIENT
  Sex: Female

DRUGS (5)
  1. ABEMACICLIB [Suspect]
     Active Substance: ABEMACICLIB
     Indication: Breast cancer
     Dosage: 150 MG, BID
     Route: 048
     Dates: start: 20210825, end: 20210918
  2. ABEMACICLIB [Suspect]
     Active Substance: ABEMACICLIB
     Dosage: 150 MG, BID
     Route: 048
     Dates: end: 20211114
  3. ABEMACICLIB [Suspect]
     Active Substance: ABEMACICLIB
     Dosage: 100 MG, BID
     Route: 048
     Dates: end: 20230704
  4. IBANDRONATE SODIUM [Interacting]
     Active Substance: IBANDRONATE SODIUM
     Indication: Breast cancer
     Dosage: 150 MG, MONTHLY (1/M)
     Route: 048
     Dates: start: 20210913
  5. LETROZOLE [Interacting]
     Active Substance: LETROZOLE
     Indication: Breast cancer
     Dosage: 2.5 MG, DAILY
     Route: 048
     Dates: start: 20210825

REACTIONS (8)
  - Myelosuppression [Recovered/Resolved]
  - Cytopenia [Recovered/Resolved]
  - C-reactive protein increased [Unknown]
  - Haematemesis [Unknown]
  - Muscle spasms [Unknown]
  - Bone pain [Unknown]
  - Vomiting [Unknown]
  - Nausea [Unknown]

NARRATIVE: CASE EVENT DATE: 20210918
